FAERS Safety Report 4577238-6 (Version None)
Quarter: 2005Q1

REPORT INFORMATION
  Report Type: 
  Country: None (occurrence: None)
  Receive Date: 20050209
  Receipt Date: 20050126
  Transmission Date: 20050727
  Serious: Yes (Death, Hospitalization)
  Sender: FDA-Public Use
  Company Number: 2004AL000678

PATIENT
  Age: 43 Year
  Sex: Female

DRUGS (4)
  1. PHENYTOIN [Suspect]
     Dosage: PO
     Route: 048
  2. ZOLPIDEM TARTRATE [Suspect]
     Dosage: PO
     Route: 048
  3. CLONAZEPAM [Concomitant]
  4. PAROXETINE HCL [Concomitant]

REACTIONS (15)
  - ABDOMINAL DISTENSION [None]
  - ABDOMINAL TENDERNESS [None]
  - ANION GAP [None]
  - ATRIOVENTRICULAR BLOCK COMPLETE [None]
  - BASE EXCESS [None]
  - BLOOD BICARBONATE DECREASED [None]
  - BLOOD POTASSIUM DECREASED [None]
  - BODY TEMPERATURE DECREASED [None]
  - CARDIAC ARREST [None]
  - COMA [None]
  - COMPLETED SUICIDE [None]
  - HYPOTENSION [None]
  - PCO2 DECREASED [None]
  - TACHYCARDIA [None]
  - VENTRICULAR FIBRILLATION [None]
